FAERS Safety Report 5580295-1 (Version None)
Quarter: 2007Q4

REPORT INFORMATION
  Report Type: 
  Country: None (occurrence: None)
  Receive Date: 20071130
  Receipt Date: 20070712
  Transmission Date: 20080405
  Serious: No
  Sender: FDA-Public Use
  Company Number: US200707003107

PATIENT
  Age: 63 Year
  Sex: Male
  Weight: 125.2 kg

DRUGS (12)
  1. BYETTA [Suspect]
     Indication: TYPE 2 DIABETES MELLITUS
     Dosage: 5 UG, 2/D, SUBCUTANEOUS ; 10 UG, 2/D, SUBCUTANEOUS
     Route: 058
     Dates: start: 20070524, end: 20070624
  2. BYETTA [Suspect]
     Indication: TYPE 2 DIABETES MELLITUS
     Dosage: 5 UG, 2/D, SUBCUTANEOUS ; 10 UG, 2/D, SUBCUTANEOUS
     Route: 058
     Dates: start: 20070624, end: 20070723
  3. METFORMIN HCL [Concomitant]
  4. GLYBURIDE [Concomitant]
  5. VYTORIN [Concomitant]
  6. TRICOR [Concomitant]
  7. COREG [Concomitant]
  8. ALLOPURINOL [Concomitant]
  9. AVANDIA [Concomitant]
  10. ASPIRIN [Concomitant]
  11. AVAPRO [Concomitant]
  12. AMLODIPINE [Concomitant]

REACTIONS (8)
  - CELLULITIS [None]
  - CONSTIPATION [None]
  - FATIGUE [None]
  - INJECTION SITE BRUISING [None]
  - INJECTION SITE IRRITATION [None]
  - PAIN [None]
  - STOMACH DISCOMFORT [None]
  - WEIGHT DECREASED [None]
